FAERS Safety Report 9151862 (Version 1)
Quarter: 2013Q1

REPORT INFORMATION
  Report Type: Report from Study
  Country: JP (occurrence: JP)
  Receive Date: 20130308
  Receipt Date: 20130308
  Transmission Date: 20140127
  Serious: Yes (Other)
  Sender: FDA-Public Use
  Company Number: JP-GLAXOSMITHKLINE-B0543399A

PATIENT
  Age: 23 Year
  Sex: Female
  Weight: 62 kg

DRUGS (15)
  1. ARRANON [Suspect]
     Indication: T-CELL TYPE ACUTE LEUKAEMIA
     Dosage: 1500MGM2 PER DAY
     Route: 042
     Dates: start: 20080716, end: 20080716
  2. ARRANON [Suspect]
     Indication: T-CELL TYPE ACUTE LEUKAEMIA
     Dosage: 1500MGM2 PER DAY
     Route: 042
     Dates: start: 20080718, end: 20080718
  3. ARRANON [Suspect]
     Indication: T-CELL TYPE ACUTE LEUKAEMIA
     Dosage: 1500MGM2 PER DAY
     Route: 042
     Dates: start: 20080720, end: 20080720
  4. CYTARABINE [Concomitant]
     Indication: NEOPLASM MALIGNANT
     Dates: start: 20080416, end: 20080417
  5. METHOTREXATE [Concomitant]
     Indication: NEOPLASM MALIGNANT
     Dates: start: 20080215, end: 20080215
  6. PREDNISOLONE [Concomitant]
     Indication: T-CELL TYPE ACUTE LEUKAEMIA
     Route: 048
     Dates: start: 20080710, end: 20080727
  7. NASEA [Concomitant]
     Indication: PROPHYLAXIS OF NAUSEA AND VOMITING
     Route: 048
     Dates: start: 20080716, end: 20080720
  8. ZYLORIC [Concomitant]
     Indication: HYPERURICAEMIA
     Route: 048
     Dates: start: 20080716, end: 20080722
  9. DIFLUCAN [Concomitant]
     Indication: INFECTION PROPHYLAXIS
     Route: 048
     Dates: start: 20080216, end: 20080727
  10. TAKEPRON [Concomitant]
     Indication: PROPHYLAXIS
     Route: 048
     Dates: start: 20080215, end: 20080727
  11. BAKTAR [Concomitant]
     Indication: INFECTION PROPHYLAXIS
     Route: 048
     Dates: start: 20080218, end: 20080727
  12. FUROSEMIDE [Concomitant]
     Dates: start: 20080716, end: 20080721
  13. MEYLON [Concomitant]
     Indication: TUMOUR LYSIS SYNDROME
     Dates: start: 20080716, end: 20080721
  14. FRAGMIN [Concomitant]
     Indication: THROMBOSIS PROPHYLAXIS
     Dates: start: 20080719, end: 20080722
  15. POLYGLOBIN-N [Concomitant]
     Indication: HYPOGAMMAGLOBULINAEMIA
     Dates: start: 20080723, end: 20080723

REACTIONS (8)
  - Thrombocytopenia [Not Recovered/Not Resolved]
  - Alanine aminotransferase increased [Recovered/Resolved]
  - Gamma-glutamyltransferase increased [Recovered/Resolved]
  - Blood alkaline phosphatase increased [Recovered/Resolved]
  - Oedema [Recovered/Resolved]
  - Face oedema [Unknown]
  - Oedema peripheral [Unknown]
  - Weight increased [Unknown]
